FAERS Safety Report 10760567 (Version 2)
Quarter: 2015Q1

REPORT INFORMATION
  Report Type: Spontaneous
  Country: CA (occurrence: None)
  Receive Date: 20150202
  Receipt Date: 20150209
  Transmission Date: 20150721
  Serious: Yes (Death, Hospitalization, Other)
  Sender: FDA-Public Use
  Company Number: 2014FE03627

PATIENT
  Age: 92 Year
  Sex: Male

DRUGS (5)
  1. OLMETEC PLUS (HYDROCHLOROTHIAZIDE, OLMESARTAN MEDOXOMIL) (TABLET) (HYDROCHLOROTHIAZIDE, OLMESARTAN MEDOXOMIL) [Concomitant]
     Active Substance: HYDROCHLOROTHIAZIDE\OLMESARTAN MEDOXOMIL
  2. CLONAZEPAM. [Concomitant]
     Active Substance: CLONAZEPAM
  3. DEGARELIX (DEGARELIX) POWDER AND SOLVENT FOR SOLUTION FOR INJECTION [Suspect]
     Active Substance: DEGARELIX
     Indication: PROSTATE CANCER
     Route: 058
     Dates: start: 20140121, end: 20141217
  4. HYDRAZINE [Concomitant]
     Active Substance: HYDRAZINE SULFATE
  5. TEVA BICALUTAMIDE (BICALUTAMIDE) [Concomitant]

REACTIONS (4)
  - Dyspnoea [None]
  - Muscular weakness [None]
  - Urinary tract infection [None]
  - Decreased appetite [None]

NARRATIVE: CASE EVENT DATE: 201410
